FAERS Safety Report 11841107 (Version 1)
Quarter: 2015Q4

REPORT INFORMATION
  Report Type: Report from Study
  Country: CN (occurrence: CN)
  Receive Date: 20151216
  Receipt Date: 20151216
  Transmission Date: 20160305
  Serious: Yes (Death)
  Sender: FDA-Public Use
  Company Number: CN-OTSUKA-2015_016550

PATIENT
  Age: 60 Year
  Sex: Female

DRUGS (3)
  1. BLINDED CILOSTAZOL [Suspect]
     Active Substance: CILOSTAZOL
     Indication: HYPOCHOLESTEROLAEMIA
     Dosage: UNK
     Route: 048
     Dates: start: 20140906, end: 20151029
  2. BLINDED *PLACEBO [Suspect]
     Active Substance: INVESTIGATIONAL PRODUCT
     Indication: HYPOCHOLESTEROLAEMIA
     Dosage: UNK
     Route: 048
     Dates: start: 20140906, end: 20151029
  3. PROBUCOL [Suspect]
     Active Substance: PROBUCOL
     Indication: HYPOCHOLESTEROLAEMIA
     Dosage: 500 MG, BID
     Route: 048
     Dates: start: 20140906, end: 20151029

REACTIONS (1)
  - Completed suicide [Fatal]

NARRATIVE: CASE EVENT DATE: 20151029
